FAERS Safety Report 24588163 (Version 1)
Quarter: 2024Q4

REPORT INFORMATION
  Report Type: Report from Study
  Country: US (occurrence: US)
  Receive Date: 20241107
  Receipt Date: 20241107
  Transmission Date: 20250114
  Serious: Yes (Other)
  Sender: ABBVIE
  Company Number: US-ABBVIE-5978634

PATIENT
  Sex: Female

DRUGS (2)
  1. CREON [Suspect]
     Active Substance: PANCRELIPASE AMYLASE\PANCRELIPASE LIPASE\PANCRELIPASE PROTEASE
     Indication: Product used for unknown indication
     Dosage: FREQUENCY TEXT: UNKNOWN
     Route: 048
     Dates: start: 20180101
  2. MAGNESIUM [Suspect]
     Active Substance: MAGNESIUM
     Indication: Product used for unknown indication
     Route: 065

REACTIONS (8)
  - Multiple sclerosis [Unknown]
  - Pancreatic atrophy [Unknown]
  - Osteoporosis [Unknown]
  - Hypovitaminosis [Not Recovered/Not Resolved]
  - Unevaluable event [Unknown]
  - Diarrhoea [Unknown]
  - Fatigue [Unknown]
  - Blood sodium decreased [Unknown]

NARRATIVE: CASE EVENT DATE: 20180101
